FAERS Safety Report 25105902 (Version 1)
Quarter: 2025Q1

REPORT INFORMATION
  Report Type: Spontaneous
  Country: US (occurrence: US)
  Receive Date: 20250321
  Receipt Date: 20250321
  Transmission Date: 20250409
  Serious: No
  Sender: BLUEPRINT MEDICINES
  Company Number: US-Blueprint Medicines Corporation-2025-AER-00537

PATIENT
  Age: 37 Year
  Sex: Male

DRUGS (1)
  1. AYVAKIT [Suspect]
     Active Substance: AVAPRITINIB
     Indication: Mastocytoma
     Route: 065
     Dates: start: 20210930

REACTIONS (2)
  - Weight increased [Unknown]
  - Hyperphagia [Unknown]
